FAERS Safety Report 10040579 (Version 1)
Quarter: 2014Q1

REPORT INFORMATION
  Report Type: Report from Study
  Country: RU (occurrence: RU)
  Receive Date: 20140327
  Receipt Date: 20140327
  Transmission Date: 20141002
  Serious: Yes (Other)
  Sender: FDA-Public Use
  Company Number: RU-ROCHE-1365897

PATIENT
  Sex: 0

DRUGS (5)
  1. RITUXIMAB [Suspect]
     Indication: JUVENILE IDIOPATHIC ARTHRITIS
     Route: 065
  2. TOCILIZUMAB [Suspect]
     Indication: JUVENILE IDIOPATHIC ARTHRITIS
     Route: 042
  3. METHOTREXATE [Concomitant]
     Indication: JUVENILE IDIOPATHIC ARTHRITIS
  4. CYCLOSPORINE [Concomitant]
     Indication: JUVENILE IDIOPATHIC ARTHRITIS
  5. PREDNISOLONE [Concomitant]
     Indication: JUVENILE IDIOPATHIC ARTHRITIS
     Route: 065

REACTIONS (15)
  - Neutropenia [Unknown]
  - Blood alkaline phosphatase increased [Unknown]
  - Cellulitis [Unknown]
  - Bronchiolitis [Unknown]
  - Alanine aminotransferase increased [Unknown]
  - Aspartate aminotransferase increased [Unknown]
  - Infusion related reaction [Unknown]
  - Adenoiditis [Unknown]
  - Sinusitis [Unknown]
  - Otitis media [Unknown]
  - Upper respiratory tract infection [Unknown]
  - Pyoderma streptococcal [Unknown]
  - Herpes virus infection [Unknown]
  - Gastroenteritis [Unknown]
  - Drug resistance [Unknown]
